FAERS Safety Report 5762014-9 (Version None)
Quarter: 2008Q2

REPORT INFORMATION
  Report Type: 
  Country: None (occurrence: None)
  Receive Date: 20080603
  Receipt Date: 20080527
  Transmission Date: 20081010
  Serious: Yes (Hospitalization)
  Sender: FDA-Public Use
  Company Number: 2008SP009044

PATIENT
  Age: 58 Year
  Sex: Female
  Weight: 49 kg

DRUGS (9)
  1. PEG-INTRON [Suspect]
     Indication: HEPATITIS C
     Dosage: 80 MCG; QW; SC; 30 MCG; QW; SC
     Route: 058
     Dates: start: 20080317, end: 20080317
  2. PEG-INTRON [Suspect]
     Indication: HEPATITIS C
     Dosage: 80 MCG; QW; SC; 30 MCG; QW; SC
     Route: 058
     Dates: start: 20080325, end: 20080428
  3. REBETOL [Suspect]
     Indication: HEPATITIS C
     Dosage: 600 MG; QD; PO
     Route: 048
     Dates: start: 20080318, end: 20080507
  4. AMLODIN OD [Concomitant]
  5. MAGLAX [Concomitant]
  6. BIOFERMIN [Concomitant]
  7. URSO 250 [Concomitant]
  8. LIVACT [Concomitant]
  9. RABEPRAZOLE SODIUM [Concomitant]

REACTIONS (4)
  - BRONCHOPNEUMONIA [None]
  - DELIRIUM [None]
  - MALAISE [None]
  - MENTAL DISORDER [None]
